FAERS Safety Report 18968090 (Version 3)
Quarter: 2021Q1

REPORT INFORMATION
  Report Type: Report from Study
  Country: AR (occurrence: AR)
  Receive Date: 20210304
  Receipt Date: 20210318
  Transmission Date: 20210420
  Serious: Yes (Other)
  Sender: FDA-Public Use
  Company Number: NVSC2021AR045493

PATIENT
  Age: 79 Year
  Sex: Male

DRUGS (8)
  1. PAXON [Concomitant]
     Dosage: UNK
     Route: 065
  2. TANSILOPROST DUO [Concomitant]
     Indication: PRODUCT USED FOR UNKNOWN INDICATION
     Dosage: UNK (FOR A YEAR)
     Route: 065
  3. ALPLAX [Suspect]
     Active Substance: ALPRAZOLAM
     Indication: SLEEP DISORDER
     Dosage: 1 MG
     Route: 065
  4. PELMEC [Concomitant]
     Active Substance: AMLODIPINE BESYLATE
     Indication: PRODUCT USED FOR UNKNOWN INDICATION
     Dosage: 10 MG, QD
     Route: 065
  5. ALPLAX [Suspect]
     Active Substance: ALPRAZOLAM
     Dosage: 0.5 MG
     Route: 065
  6. COSENTYX [Suspect]
     Active Substance: SECUKINUMAB
     Indication: PSORIASIS
     Dosage: 300 MG, QMO
     Route: 058
     Dates: start: 20160210
  7. PAXON [Concomitant]
     Indication: PRODUCT USED FOR UNKNOWN INDICATION
     Dosage: 5 MG, QD
     Route: 065
  8. PELMEC [Concomitant]
     Active Substance: AMLODIPINE BESYLATE
     Dosage: UNK
     Route: 065

REACTIONS (10)
  - Injury [Unknown]
  - Dysuria [Unknown]
  - Sneezing [Unknown]
  - Blindness [Unknown]
  - Memory impairment [Not Recovered/Not Resolved]
  - Syncope [Not Recovered/Not Resolved]
  - Amnesia [Not Recovered/Not Resolved]
  - Prostatic disorder [Unknown]
  - Mass [Unknown]
  - Hypersensitivity [Unknown]

NARRATIVE: CASE EVENT DATE: 202101
